FAERS Safety Report 5797236-4 (Version None)
Quarter: 2008Q3

REPORT INFORMATION
  Report Type: 
  Country: None (occurrence: None)
  Receive Date: 20080701
  Receipt Date: 20080619
  Transmission Date: 20090109
  Serious: Yes (Hospitalization)
  Sender: FDA-Public Use
  Company Number: FR-PFIZER INC-2006012265

PATIENT
  Sex: Male
  Weight: 99 kg

DRUGS (1)
  1. SU-011,248 [Suspect]
     Indication: RENAL CANCER
     Route: 048
     Dates: start: 20051226, end: 20060115

REACTIONS (2)
  - ARTHRITIS BACTERIAL [None]
  - MEDICAL DEVICE COMPLICATION [None]
